FAERS Safety Report 9235402 (Version 1)
Quarter: 2013Q2

REPORT INFORMATION
  Report Type: Spontaneous
  Country: US (occurrence: US)
  Receive Date: 20130417
  Receipt Date: 20130417
  Transmission Date: 20140414
  Serious: No
  Sender: FDA-Public Use
  Company Number: US-009507513-1304USA006436

PATIENT
  Age: 43 Year
  Sex: Female
  Weight: 90.7 kg

DRUGS (1)
  1. NEXPLANON [Suspect]
     Indication: CONTRACEPTION
     Dosage: IMPLANT INSERTED FOR 3 YEARS
     Route: 059
     Dates: start: 20130329

REACTIONS (3)
  - Pruritus [Unknown]
  - Pain in extremity [Unknown]
  - Rash maculo-papular [Unknown]
